FAERS Safety Report 7940019-7 (Version None)
Quarter: 2011Q4

REPORT INFORMATION
  Report Type: 
  Country: None (occurrence: None)
  Receive Date: 20111125
  Receipt Date: 20111122
  Transmission Date: 20120403
  Serious: Yes (Other)
  Sender: FDA-Public Use
  Company Number: US-PFIZER INC-2011286479

PATIENT
  Sex: Female
  Weight: 113 kg

DRUGS (1)
  1. PREMARIN [Suspect]
     Indication: OESTROGEN THERAPY
     Dosage: UNK, TWO TIMES A WEEK
     Route: 067
     Dates: start: 20111101, end: 20111117

REACTIONS (2)
  - OVARIAN DISORDER [None]
  - ADNEXA UTERI PAIN [None]
